FAERS Safety Report 7314540-9 (Version None)
Quarter: 2011Q1

REPORT INFORMATION
  Report Type: 
  Country: None (occurrence: None)
  Receive Date: 20110225
  Receipt Date: 20101118
  Transmission Date: 20110831
  Serious: No
  Sender: FDA-Public Use
  Company Number: US-MYLANLABS-2010S1017697

PATIENT
  Age: 22 Year
  Sex: Female
  Weight: 58.97 kg

DRUGS (1)
  1. AMNESTEEM [Suspect]
     Indication: ACNE CYSTIC
     Route: 048
     Dates: start: 20100623, end: 20100923

REACTIONS (9)
  - HAEMATOCHEZIA [None]
  - DRY SKIN [None]
  - EPISTAXIS [None]
  - CONSTIPATION [None]
  - PAINFUL DEFAECATION [None]
  - DRUG INTOLERANCE [None]
  - SKIN BURNING SENSATION [None]
  - ALOPECIA [None]
  - LIP DRY [None]
